FAERS Safety Report 5078668-9 (Version None)
Quarter: 2006Q3

REPORT INFORMATION
  Report Type: 
  Country: None (occurrence: None)
  Receive Date: 20060809
  Receipt Date: 20060727
  Transmission Date: 20061208
  Serious: Yes (Hospitalization)
  Sender: FDA-Public Use
  Company Number: 227987

PATIENT
  Age: 68 Year
  Sex: Male

DRUGS (4)
  1. MABTHERA           (RITUXIMAB) [Suspect]
     Indication: NON-HODGKIN'S LYMPHOMA
     Dosage: 375 MG/M2, Q4W, INTRAVENOUS
     Route: 042
     Dates: start: 20041123, end: 20050411
  2. CYCLOPHOSPHAMIDE [Suspect]
     Indication: NON-HODGKIN'S LYMPHOMA
     Dosage: 1000 MG/M2, Q28D, INTRAVENOUS
     Route: 042
     Dates: start: 20041123, end: 20050411
  3. FLUDARABINE [Suspect]
     Indication: NON-HODGKIN'S LYMPHOMA
     Dosage: 75 MG/M2, Q28D, INTRAVENOUS
     Route: 042
     Dates: start: 20041123, end: 20050411
  4. SEPTRA [Concomitant]

REACTIONS (2)
  - DISEASE RECURRENCE [None]
  - TOXOPLASMOSIS [None]
